FAERS Safety Report 8188362-3 (Version None)
Quarter: 2012Q1

REPORT INFORMATION
  Report Type: 
  Country: None (occurrence: None)
  Receive Date: 20120221
  Receipt Date: 20110112
  Transmission Date: 20120608
  Serious: Yes (Other)
  Sender: FDA-Public Use
  Company Number: PHHY2011US03696

PATIENT
  Age: 37 Year
  Sex: Male

DRUGS (1)
  1. TOBI [Suspect]
     Indication: EMPHYSEMA
     Dosage: 300 MG/5ML BID, INHALATION
     Route: 055
     Dates: start: 20110107

REACTIONS (3)
  - DYSPNOEA [None]
  - ASTHMA [None]
  - SPEECH DISORDER [None]
